FAERS Safety Report 5167171-3 (Version None)
Quarter: 2006Q4

REPORT INFORMATION
  Report Type: 
  Country: None (occurrence: None)
  Receive Date: 20061129
  Receipt Date: 20061127
  Transmission Date: 20070319
  Serious: Yes (Other)
  Sender: FDA-Public Use
  Company Number: TCI2006A05161

PATIENT
  Age: 73 Year
  Sex: Male

DRUGS (5)
  1. LANSAP 800 (LANSOPRAZOLE, CLARITHROMYCIN, AMOXICILLIN) (PREPARATION FO [Suspect]
     Indication: HELICOBACTER INFECTION
     Dosage: 0.5 CARD (0.5 CARD, 1 IN 1 D) PER ORAL; SEE IMAGE
     Route: 048
     Dates: start: 20061106, end: 20061106
  2. LANSAP 800 (LANSOPRAZOLE, CLARITHROMYCIN, AMOXICILLIN) (PREPARATION FO [Suspect]
     Indication: HELICOBACTER INFECTION
     Dosage: 0.5 CARD (0.5 CARD, 1 IN 1 D) PER ORAL; SEE IMAGE
     Route: 048
     Dates: start: 20061107, end: 20061107
  3. MELEX (MEXAZOLAM) [Concomitant]
  4. CALVAN (BEVANTOLOL HYDROCHLORIDE) [Concomitant]
  5. CONIEL (BENIDIPINE HYDROCHLORIDE) [Concomitant]

REACTIONS (9)
  - ABDOMINAL DISTENSION [None]
  - ABDOMINAL PAIN [None]
  - ASTHENIA [None]
  - CONSTIPATION [None]
  - HEADACHE [None]
  - PALPITATIONS [None]
  - SENSORY LOSS [None]
  - SHOCK [None]
  - VISUAL FIELD DEFECT [None]
